FAERS Safety Report 11655033 (Version 1)
Quarter: 2015Q4

REPORT INFORMATION
  Report Type: Spontaneous
  Country: TR (occurrence: TR)
  Receive Date: 20151023
  Receipt Date: 20151023
  Transmission Date: 20160304
  Serious: Yes (Hospitalization, Other)
  Sender: FDA-Public Use
  Company Number: TR-WATSON-2015-22168

PATIENT
  Age: 34 Year
  Sex: Female

DRUGS (3)
  1. CALCIUM                            /07357001/ [Concomitant]
     Indication: PRODUCT USED FOR UNKNOWN INDICATION
     Dosage: 800 MG, UNKNOWN
     Route: 065
  2. CALCIUM                            /07357001/ [Concomitant]
     Dosage: 1000 MG, UNKNOWN
     Route: 065
  3. ENOXAPARIN (UNKNOWN) [Suspect]
     Active Substance: ENOXAPARIN
     Indication: THROMBOSIS PROPHYLAXIS
     Dosage: 40 MG, DAILY
     Route: 065

REACTIONS (3)
  - Osteoporosis [Recovering/Resolving]
  - Maternal exposure during pregnancy [Recovered/Resolved]
  - Spinal fracture [Recovering/Resolving]
